FAERS Safety Report 5239012-7 (Version None)
Quarter: 2007Q1

REPORT INFORMATION
  Report Type: 
  Country: None (occurrence: None)
  Receive Date: 20061208
  Receipt Date: 20050815
  Transmission Date: 20070707
  Serious: Yes (Other)
  Sender: FDA-Public Use
  Company Number: 2005UW09144

PATIENT
  Age: 82 Year
  Sex: Female
  Weight: 68.038 kg

DRUGS (11)
  1. CRESTOR [Suspect]
     Indication: BLOOD CHOLESTEROL INCREASED
     Dosage: 10 MG DAILY PO
     Route: 048
     Dates: start: 20050224, end: 20050503
  2. VASOTEC [Concomitant]
  3. SYNTHROID [Concomitant]
  4. LOZOL [Concomitant]
  5. ACCUVITE [Concomitant]
  6. HYDROXYZINE [Concomitant]
  7. VALIUM [Concomitant]
  8. CALCIUM [Concomitant]
  9. POTASSIUM ACETATE [Concomitant]
  10. FLAX OIL [Concomitant]
  11. ACIPHEX [Concomitant]

REACTIONS (5)
  - HEADACHE [None]
  - MYALGIA [None]
  - NECK PAIN [None]
  - SWOLLEN TONGUE [None]
  - TONGUE DISORDER [None]
